FAERS Safety Report 7341756-8 (Version None)
Quarter: 2011Q1

REPORT INFORMATION
  Report Type: 
  Country: None (occurrence: None)
  Receive Date: 20110309
  Receipt Date: 20110211
  Transmission Date: 20110831
  Serious: No
  Sender: FDA-Public Use
  Company Number: US-B.I. PHARMACEUTICALS,INC./RIDGEFIELD-2011-BP-05557BP

PATIENT
  Sex: Male

DRUGS (9)
  1. TRAMADOL HCL [Concomitant]
     Indication: BACK PAIN
  2. CLONAZEPAM [Concomitant]
     Indication: SLEEP DISORDER
  3. SOTALOL HYDROCHLORIDE [Concomitant]
     Indication: ATRIAL FIBRILLATION
  4. MULTIVITAMIN [Concomitant]
     Indication: PROPHYLAXIS
  5. OXYGEN [Concomitant]
     Indication: SURGERY
  6. HYDROCODONE BITARTRATE [Concomitant]
     Indication: BACK PAIN
  7. PRADAXA [Suspect]
     Indication: ATRIAL FIBRILLATION
  8. LIPITOR [Concomitant]
     Indication: BLOOD CHOLESTEROL INCREASED
  9. PRADAXA [Suspect]
     Indication: ANTICOAGULANT THERAPY
     Dosage: 300 MG
     Route: 048
     Dates: start: 20110101

REACTIONS (1)
  - DECREASED APPETITE [None]
